FAERS Safety Report 6781551-1 (Version None)
Quarter: 2010Q2

REPORT INFORMATION
  Report Type: 
  Country: None (occurrence: None)
  Receive Date: 20100621
  Receipt Date: 20100611
  Transmission Date: 20101027
  Serious: Yes (Hospitalization, Other)
  Sender: FDA-Public Use
  Company Number: AU-JNJFOC-20100604413

PATIENT
  Sex: Male

DRUGS (6)
  1. ITRACONAZOLE [Suspect]
     Indication: ASPERGILLOSIS
     Route: 048
  2. VORICONAZOLE [Suspect]
     Indication: ASPERGILLOSIS
     Route: 048
  3. CASPOFUNGIN ACETATE [Suspect]
     Indication: ASPERGILLOSIS
     Route: 065
  4. POSACONAZOLE [Suspect]
     Indication: ASPERGILLOSIS
     Route: 065
  5. CIPROFLOXACIN [Suspect]
     Indication: ASPERGILLOSIS
     Route: 065
  6. ALL OTHER THERAPEUTIC PRODUCTS [Concomitant]
     Route: 065

REACTIONS (4)
  - DRUG INEFFECTIVE [None]
  - HEPATIC ENZYME INCREASED [None]
  - HYPOCALCAEMIA [None]
  - HYPONATRAEMIA [None]
